FAERS Safety Report 8362541-4 (Version None)
Quarter: 2012Q2

REPORT INFORMATION
  Report Type: 
  Country: None (occurrence: None)
  Receive Date: 20120516
  Receipt Date: 20120504
  Transmission Date: 20120825
  Serious: Yes (Hospitalization)
  Sender: FDA-Public Use
  Company Number: FR-BRISTOL-MYERS SQUIBB COMPANY-16580557

PATIENT
  Age: 85 Year
  Sex: Female

DRUGS (16)
  1. CACIT [Concomitant]
     Route: 048
  2. LACTULOSE [Concomitant]
     Route: 048
  3. ASPIRIN [Concomitant]
     Route: 048
  4. EFFEXOR [Suspect]
     Indication: DEPRESSION
     Route: 048
     Dates: start: 20080101, end: 20110801
  5. OMEPRAZOLE [Suspect]
     Dosage: FOR A LONG TIME
     Route: 048
     Dates: end: 20110801
  6. ZOLPIDEM TARTRATE [Concomitant]
     Route: 048
  7. IRBESARTAN + HYDROCHLOROTHIAZIDE [Suspect]
     Dosage: FOR A LONG TIME,FISH OIL RICH IN OMEGA-3 ACIDS
     Route: 048
     Dates: end: 20110801
  8. PREDNISONE TAB [Concomitant]
     Route: 048
  9. PROTELOS [Concomitant]
     Route: 048
  10. METHOTREXATE [Concomitant]
     Route: 048
  11. LOVAZA [Concomitant]
     Route: 048
  12. EZETIMIBE [Concomitant]
     Dosage: 1 DF : 10MG/20MG
     Route: 048
  13. VITAMIN D [Concomitant]
     Route: 048
  14. ACETAMINOPHEN [Concomitant]
     Route: 048
  15. BISOPROLOL FUMARATE [Concomitant]
     Route: 048
  16. OXAZEPAM [Concomitant]
     Route: 048

REACTIONS (5)
  - HYPONATRAEMIA [None]
  - ASTHENIA [None]
  - DISORIENTATION [None]
  - DEPRESSION [None]
  - CONSTIPATION [None]
